FAERS Safety Report 4830579-7 (Version None)
Quarter: 2005Q4

REPORT INFORMATION
  Report Type: 
  Country: None (occurrence: None)
  Receive Date: 20051115
  Receipt Date: 20051102
  Transmission Date: 20060501
  Serious: Yes (Other)
  Sender: FDA-Public Use
  Company Number: 2005137833

PATIENT
  Sex: Male

DRUGS (2)
  1. CELEBREX [Suspect]
     Indication: ARTHRALGIA
     Dosage: 200 MG (200 MG, 1 IN 1 D), ORAL
     Route: 048
     Dates: end: 20050101
  2. IBUPROFEN [Suspect]
     Indication: ARTHRALGIA
     Dosage: 1600 MG (400 MG, 4 IN 1 D), ORAL
     Route: 048

REACTIONS (2)
  - BILE DUCT STENT INSERTION [None]
  - BLOOD ALKALINE PHOSPHATASE INCREASED [None]
